FAERS Safety Report 5919280-6 (Version None)
Quarter: 2008Q4

REPORT INFORMATION
  Report Type: 
  Country: None (occurrence: None)
  Receive Date: 20081015
  Receipt Date: 20081006
  Transmission Date: 20090506
  Serious: Yes (Hospitalization, Other)
  Sender: FDA-Public Use
  Company Number: PHEH2008US07695

PATIENT
  Sex: Female
  Weight: 103 kg

DRUGS (5)
  1. RECLAST [Suspect]
     Indication: OSTEOPOROSIS
     Dosage: 5 MG, YEARLY
     Route: 042
  2. ORENCIA [Concomitant]
     Dosage: 1000 MG, QMO
     Route: 042
  3. PLAVIX [Concomitant]
     Dosage: 75 MG, QD
  4. ARAVA [Concomitant]
     Dosage: 20 MG, QD
     Route: 048
  5. SYNTHROID [Concomitant]
     Dosage: .25 MG, UNK
     Route: 048

REACTIONS (6)
  - ARTHRALGIA [None]
  - DIZZINESS POSTURAL [None]
  - EATING DISORDER [None]
  - HYPOTENSION [None]
  - INFLUENZA [None]
  - PAIN [None]
